FAERS Safety Report 11678652 (Version 2)
Quarter: 2016Q2

REPORT INFORMATION
  Report Type: Spontaneous
  Country: US (occurrence: US)
  Receive Date: 20151028
  Receipt Date: 20160503
  Transmission Date: 20160815
  Serious: No
  Sender: FDA-Public Use
  Company Number: US-IMPAX LABORATORIES, INC-2015-IPXL-00822

PATIENT
  Age: 72 Year
  Sex: Male
  Weight: 91 kg

DRUGS (3)
  1. RYTARY [Suspect]
     Active Substance: CARBIDOPA\LEVODOPA
     Indication: PARKINSON^S DISEASE
     Dosage: THREE CAPSULES EVERY 6 HOURS
     Route: 048
     Dates: start: 201503, end: 2015
  2. STATIN [Concomitant]
     Active Substance: UNSPECIFIED INGREDIENT
     Indication: BLOOD CHOLESTEROL INCREASED
     Dosage: UNK
     Route: 065
  3. RYTARY [Suspect]
     Active Substance: CARBIDOPA\LEVODOPA
     Dosage: 3 PILLS AT 6 AM,2 PILLS AT 12 PM,3 PILLS AT 6 PM,2 PILL AT 12 AM(TOTAL 10 PILLS DAILY)
     Route: 048
     Dates: start: 2015

REACTIONS (2)
  - Hallucination [Recovering/Resolving]
  - Drug effect variable [Not Recovered/Not Resolved]

NARRATIVE: CASE EVENT DATE: 201503
